FAERS Safety Report 9060277 (Version 1)
Quarter: 2013Q1

REPORT INFORMATION
  Report Type: Spontaneous
  Country: US (occurrence: None)
  Receive Date: 20130207
  Receipt Date: 20130207
  Transmission Date: 20140127
  Serious: Yes (Hospitalization)
  Sender: FDA-Public Use
  Company Number: None

PATIENT
  Sex: Male
  Weight: 90.72 kg

DRUGS (1)
  1. NITROFURANT MACRO [Suspect]
     Indication: CYSTITIS
     Dates: start: 20120925, end: 20120927

REACTIONS (1)
  - Myalgia [None]
